FAERS Safety Report 5138893-5 (Version None)
Quarter: 2006Q4

REPORT INFORMATION
  Report Type: 
  Country: None (occurrence: None)
  Receive Date: 20061030
  Receipt Date: 20060511
  Transmission Date: 20070319
  Serious: No
  Sender: FDA-Public Use
  Company Number: US-GLAXOSMITHKLINE-A0605218A

PATIENT
  Sex: Female

DRUGS (9)
  1. ADVAIR HFA [Suspect]
     Indication: ASTHMA
     Dosage: 1PUFF TWICE PER DAY
     Route: 055
  2. ZYPREXA [Concomitant]
  3. LEXAPRO [Concomitant]
  4. COZAAR [Concomitant]
  5. LOPRESSOR [Concomitant]
  6. NOVOLIN 70/30 [Concomitant]
  7. EXELON [Concomitant]
  8. THEOPHYLLINE [Concomitant]
  9. VALIUM [Concomitant]

REACTIONS (2)
  - DYSPNOEA [None]
  - WEIGHT INCREASED [None]
